FAERS Safety Report 6003982-X (Version None)
Quarter: 2008Q4

REPORT INFORMATION
  Report Type: 
  Country: None (occurrence: None)
  Receive Date: 20081212
  Receipt Date: 20081128
  Transmission Date: 20090506
  Serious: Yes (Other)
  Sender: FDA-Public Use
  Company Number: 2008S1021422

PATIENT
  Age: 61 Year
  Sex: Female

DRUGS (1)
  1. METFORMIN DURA (METFORMIN HYDROCHLORIDE) (1000 MG) [Suspect]
     Indication: TYPE 1 DIABETES MELLITUS
     Dosage: 1 G

REACTIONS (1)
  - DERMATITIS ALLERGIC [None]
